FAERS Safety Report 5247282-4 (Version None)
Quarter: 2007Q1

REPORT INFORMATION
  Report Type: 
  Country: None (occurrence: None)
  Receive Date: 20070227
  Receipt Date: 20070214
  Transmission Date: 20070707
  Serious: Yes (Hospitalization)
  Sender: FDA-Public Use
  Company Number: PHBS2007JP03073

PATIENT
  Age: 69 Year
  Sex: Male

DRUGS (1)
  1. NEORAL [Suspect]
     Indication: CHRONIC INFLAMMATORY DEMYELINATING POLYRADICULONEUROPATHY
     Dosage: 50 MG/DAY
     Route: 048
     Dates: start: 20061201

REACTIONS (1)
  - AORTIC ANEURYSM [None]
